FAERS Safety Report 10028536 (Version 1)
Quarter: 2014Q1

REPORT INFORMATION
  Report Type: Spontaneous
  Country: US (occurrence: US)
  Receive Date: 20140321
  Receipt Date: 20140321
  Transmission Date: 20141002
  Serious: No
  Sender: FDA-Public Use
  Company Number: US-PFIZER INC-2014077384

PATIENT
  Sex: Female
  Weight: 65.76 kg

DRUGS (2)
  1. ADVIL [Suspect]
     Dosage: UNK
  2. SYNTHROID [Concomitant]
     Dosage: UNK

REACTIONS (1)
  - Epistaxis [Unknown]
